FAERS Safety Report 25374808 (Version 1)
Quarter: 2025Q2

REPORT INFORMATION
  Report Type: Report from Study
  Country: US (occurrence: US)
  Receive Date: 20250529
  Receipt Date: 20250529
  Transmission Date: 20250717
  Serious: Yes (Hospitalization)
  Sender: ABBVIE
  Company Number: US-ABBVIE-6298767

PATIENT
  Age: 58 Year
  Sex: Female

DRUGS (1)
  1. BOTOX [Suspect]
     Active Substance: ONABOTULINUMTOXINA
     Indication: Migraine without aura
     Route: 065

REACTIONS (7)
  - Cardiac disorder [Unknown]
  - Arrhythmia [Unknown]
  - Gluten sensitivity [Unknown]
  - Hypertension [Unknown]
  - Ejection fraction decreased [Unknown]
  - Atrioventricular block [Unknown]
  - COVID-19 [Unknown]

NARRATIVE: CASE EVENT DATE: 20250505
